FAERS Safety Report 6152393-5 (Version None)
Quarter: 2009Q2

REPORT INFORMATION
  Report Type: 
  Country: None (occurrence: None)
  Receive Date: 20090413
  Receipt Date: 20071205
  Transmission Date: 20091009
  Serious: Yes (Death, Hospitalization)
  Sender: FDA-Public Use
  Company Number: US-ASTRAZENECA-2007UW25068

PATIENT
  Age: 21838 Day
  Sex: Male
  Weight: 79.4 kg

DRUGS (34)
  1. SEROQUEL [Suspect]
     Dosage: 25 MG - 100 MG
     Route: 048
     Dates: start: 19990101, end: 20050725
  2. PROZAC [Concomitant]
  3. DOXEPIN HCL [Concomitant]
  4. INDERAL [Concomitant]
  5. CAPOTEN [Concomitant]
  6. ATIVAN [Concomitant]
  7. AMITRIPTYLINE HCL [Concomitant]
  8. BUSPAR [Concomitant]
  9. MINIPRESS [Concomitant]
  10. LESCOL [Concomitant]
  11. SERZONE [Concomitant]
  12. NEURONTIN [Concomitant]
  13. ALLOPURINOL [Concomitant]
  14. ZOCOR [Concomitant]
  15. VALIUM [Concomitant]
  16. ASPIRIN [Concomitant]
  17. HYDROCHLOROTHIAZIDE [Concomitant]
  18. CARISOPRODOL [Concomitant]
  19. TAGAMET [Concomitant]
  20. ALTACE [Concomitant]
  21. DERMATOP [Concomitant]
  22. HALOG CREAM [Concomitant]
  23. VITAMIN B-12 [Concomitant]
  24. DAYPRO [Concomitant]
  25. NEXIUM [Concomitant]
  26. NITROL [Concomitant]
  27. LIPITOR [Concomitant]
  28. HYDROCODONE BITARTRATE [Concomitant]
  29. DARVOCET [Concomitant]
  30. ACCUPRIL [Concomitant]
  31. REMERON [Concomitant]
  32. WELLBUTRIN [Concomitant]
  33. NORVASC [Concomitant]
  34. TOPOROL XL [Concomitant]

REACTIONS (28)
  - ABDOMINAL PAIN LOWER [None]
  - ACUTE SINUSITIS [None]
  - ANXIETY [None]
  - ARTHRALGIA [None]
  - ASTHENIA [None]
  - BENIGN PROSTATIC HYPERPLASIA [None]
  - CELLULITIS [None]
  - CHEST PAIN [None]
  - CONSTRICTED AFFECT [None]
  - DYSPEPSIA [None]
  - FATIGUE [None]
  - HAEMATOMA [None]
  - HOMICIDE [None]
  - HYPERGLYCAEMIA [None]
  - HYPERLIPIDAEMIA [None]
  - HYPERTENSION [None]
  - MAJOR DEPRESSION [None]
  - MERYCISM [None]
  - NEPHROLITHIASIS [None]
  - NIGHTMARE [None]
  - OEDEMA [None]
  - OSTEOARTHRITIS [None]
  - PAIN IN EXTREMITY [None]
  - PALPITATIONS [None]
  - POST-TRAUMATIC STRESS DISORDER [None]
  - RHINITIS ALLERGIC [None]
  - SLEEP APNOEA SYNDROME [None]
  - SWELLING [None]
